FAERS Safety Report 10387680 (Version 1)
Quarter: 2014Q1

REPORT INFORMATION
  Report Type: Spontaneous
  Country: US (occurrence: None)
  Receive Date: 20140306
  Receipt Date: 20140306
  Transmission Date: 20141002
  Serious: Yes (Hospitalization)
  Sender: FDA-Public Use
  Company Number: 163-21880-13071091

PATIENT
  Age: 87 Year
  Sex: Male

DRUGS (6)
  1. REVLIMID [Suspect]
     Indication: PLASMA CELL MYELOMA
     Dosage: 21 IN 21 D
     Route: 048
     Dates: start: 20130521
  2. AMLODIPINE BESYLATE (AMLODIPINE BESILATE) [Concomitant]
  3. SIMVASTATIN [Concomitant]
  4. METOPROLOL SUCCINATE [Concomitant]
  5. NEXIUM (ESOMEPRAZOLE) [Concomitant]
  6. PRADAXA (DABIDATRAN ETEXILATE MESILATE) [Concomitant]

REACTIONS (1)
  - Malaise [None]
